FAERS Safety Report 8574925-X (Version None)
Quarter: 2012Q3

REPORT INFORMATION
  Report Type: 
  Country: None (occurrence: None)
  Receive Date: 20120807
  Receipt Date: 20120725
  Transmission Date: 20120928
  Serious: No
  Sender: FDA-Public Use
  Company Number: US-ENDO PHARMACEUTICALS INC.-OPCR20121695

PATIENT
  Sex: Male

DRUGS (2)
  1. OPANA ER [Suspect]
     Route: 048
     Dates: start: 20120101, end: 20120101
  2. OPANA ER [Suspect]
     Indication: PRODUCT USED FOR UNKNOWN INDICATION
     Route: 048
     Dates: start: 20120101, end: 20120101

REACTIONS (3)
  - GASTROINTESTINAL DISORDER [None]
  - MEDICATION RESIDUE [None]
  - GASTROINTESTINAL ULCER [None]
